FAERS Safety Report 16961385 (Version 7)
Quarter: 2020Q3

REPORT INFORMATION
  Report Type: Report from Study
  Country: DE (occurrence: DE)
  Receive Date: 20191025
  Receipt Date: 20200812
  Transmission Date: 20201102
  Serious: Yes (Hospitalization)
  Sender: FDA-Public Use
  Company Number: DE-GILEAD-2019-0434326

PATIENT
  Sex: Female

DRUGS (17)
  1. CANDESARTAN. [Concomitant]
     Active Substance: CANDESARTAN
     Dosage: UNK
     Dates: start: 2009
  2. CLEMASTIN [Concomitant]
     Active Substance: CLEMASTINE
     Dosage: UNK
     Dates: start: 20190226, end: 20190717
  3. RANITIDIN [Concomitant]
     Active Substance: RANITIDINE HYDROCHLORIDE
     Dosage: UNK
     Dates: start: 20190226, end: 20190717
  4. JARDIANCE [Concomitant]
     Active Substance: EMPAGLIFLOZIN
     Dosage: UNK
     Dates: start: 2009
  5. ONDANSETRON [Concomitant]
     Active Substance: ONDANSETRON
     Dosage: UNK
     Dates: start: 20190226, end: 20190226
  6. KOMBOGLYZE [Concomitant]
     Active Substance: METFORMIN HYDROCHLORIDE\SAXAGLIPTIN
     Indication: DIABETES MELLITUS
     Dosage: UNK
     Dates: start: 2009
  7. COTRIM [Suspect]
     Active Substance: SULFAMETHOXAZOLE\TRIMETHOPRIM
     Indication: PROPHYLAXIS
     Dosage: UNK
     Route: 065
     Dates: start: 20190227, end: 20191009
  8. LERCANIDIPINE [Concomitant]
     Active Substance: LERCANIDIPINE
     Dosage: UNK
     Dates: start: 2009
  9. ASS TAD PROTECT [Concomitant]
     Indication: HYPERTENSION
     Dosage: UNK
     Dates: start: 2009
  10. DECORTIN [Concomitant]
     Active Substance: PREDNISONE
     Dosage: UNK
     Dates: start: 20190226, end: 20190226
  11. RITUXIMAB. [Concomitant]
     Active Substance: RITUXIMAB
     Dosage: UNK
     Dates: start: 20190313, end: 20190425
  12. RITUXIMAB. [Concomitant]
     Active Substance: RITUXIMAB
     Dosage: UNK
     Dates: start: 20190523, end: 20190717
  13. PARACETAMOL [Concomitant]
     Active Substance: ACETAMINOPHEN
     Dosage: UNK
     Dates: start: 20190226, end: 20190717
  14. RITUXIMAB. [Concomitant]
     Active Substance: RITUXIMAB
     Dosage: UNK
     Dates: start: 20190226, end: 20190226
  15. IDELALISIB [Suspect]
     Active Substance: IDELALISIB
     Indication: CHRONIC LYMPHOCYTIC LEUKAEMIA
     Dosage: 300 MG, QD
     Route: 048
     Dates: start: 20190226, end: 20191009
  16. BISOPROLOL [Concomitant]
     Active Substance: BISOPROLOL
     Dosage: UNK
     Dates: start: 2009
  17. ATORVASTATIN [Concomitant]
     Active Substance: ATORVASTATIN
     Dosage: UNK
     Dates: start: 2009

REACTIONS (1)
  - Dermatitis psoriasiform [Recovered/Resolved]

NARRATIVE: CASE EVENT DATE: 20191005
